FAERS Safety Report 18413782 (Version 2)
Quarter: 2020Q4

REPORT INFORMATION
  Report Type: Spontaneous
  Country: US (occurrence: US)
  Receive Date: 20201022
  Receipt Date: 20201103
  Transmission Date: 20210114
  Serious: Yes (Other)
  Sender: FDA-Public Use
  Company Number: US-ASTRAZENECA-2020SF35503

PATIENT
  Sex: Female

DRUGS (2)
  1. SYMBICORT [Suspect]
     Active Substance: BUDESONIDE\FORMOTEROL FUMARATE DIHYDRATE
     Indication: CHRONIC OBSTRUCTIVE PULMONARY DISEASE
     Dosage: 160/4.5 MCG 120 INHALATIONS, TWO PUFFS AT NIGHT AND TWO PUFFS IN THE EVENING
     Route: 055
     Dates: start: 2006
  2. OXYGEN. [Concomitant]
     Active Substance: OXYGEN

REACTIONS (7)
  - Gait inability [Unknown]
  - Tooth injury [Unknown]
  - Hypophagia [Unknown]
  - Tooth malformation [Unknown]
  - Teeth brittle [Unknown]
  - Tongue injury [Unknown]
  - Mouth ulceration [Unknown]
